FAERS Safety Report 8985677 (Version 1)
Quarter: 2012Q4

REPORT INFORMATION
  Report Type: 
  Country: GB (occurrence: GB)
  Receive Date: 20121226
  Receipt Date: 20121226
  Transmission Date: 20130627
  Serious: Yes (Life-Threatening, Hospitalization, Other)
  Sender: FDA-Public Use
  Company Number: GB-B.I. PHARMACEUTICALS,INC./RIDGEFIELD-2012-UK-01954UK

PATIENT
  Age: 81 Year
  Sex: Female

DRUGS (5)
  1. PRADAXA [Suspect]
     Dosage: 110 mg
     Route: 048
     Dates: start: 20121116, end: 20121118
  2. AMITRIPTYLINE [Concomitant]
  3. BISOPROLOL [Concomitant]
  4. INDAPAMIDE [Concomitant]
  5. LISINOPRIL [Concomitant]

REACTIONS (3)
  - Atrial fibrillation [Recovered/Resolved]
  - Chest pain [Recovered/Resolved]
  - Syncope [Unknown]
